FAERS Safety Report 15305584 (Version 1)
Quarter: 2018Q4

REPORT INFORMATION
  Report Type: Spontaneous
  Country: DE (occurrence: DE)
  Receive Date: 20180822
  Receipt Date: 20180822
  Transmission Date: 20190204
  Serious: Yes (Other)
  Sender: FDA-Public Use
  Company Number: DE-TEVA-2018-DE-944759

PATIENT
  Age: 45 Year
  Sex: Female

DRUGS (10)
  1. ESTRADIOL. [Suspect]
     Active Substance: ESTRADIOL
     Dosage: LESS THAN HALF A PUFF DAILY (UNKNOWN, 1 D)
     Route: 062
     Dates: start: 2018
  2. VITAMIN B COMPLEX [Concomitant]
     Active Substance: CYANOCOBALAMIN\DEXPANTHENOL\NIACINAMIDE\PYRIDOXINE HYDROCHLORIDE\RIBOFLAVIN 5^-PHOSPHATE SODIUM\THIAMINE HYDROCHLORIDE\VITAMIN B COMPLEX
     Indication: PRODUCT USED FOR UNKNOWN INDICATION
     Route: 065
  3. PROGESTAN [Suspect]
     Active Substance: PROGESTERONE
     Indication: PREVENTION OF ENDOMETRIAL HYPERPLASIA
     Dosage: 1 DOSAGE FORMS DAILY; 100 MG (1 CAPSULE) ONCE DAILY
     Route: 067
     Dates: start: 201505, end: 201512
  4. GYNOKADIN DOSIERGEL (ESTRADIOL HEMIHYDRATE) [Suspect]
     Active Substance: ESTRADIOL HEMIHYDRATE
     Indication: HORMONE REPLACEMENT THERAPY
     Dosage: 1 DOSAGE FORMS DAILY; REDUCED TO 1/2 PUFF AND LESS IN 2018
     Route: 062
     Dates: start: 201503
  5. VITAMIN D [Concomitant]
     Active Substance: CHOLECALCIFEROL
     Indication: PRODUCT USED FOR UNKNOWN INDICATION
     Route: 065
  6. LINOLADIOL NH (ESTRADIOL\LINOLEIC ACID) [Interacting]
     Active Substance: ESTRADIOL\LINOLEIC ACID
     Indication: LICHEN SCLEROSUS
     Route: 061
     Dates: start: 201801, end: 201805
  7. ESTRADIOL. [Suspect]
     Active Substance: ESTRADIOL
     Route: 062
  8. DUPHASTON [Concomitant]
     Active Substance: DYDROGESTERONE
     Indication: PREVENTION OF ENDOMETRIAL HYPERPLASIA
     Dosage: 10 MILLIGRAM
     Route: 048
     Dates: start: 201601
  9. MIRTAZAPIN [Concomitant]
     Active Substance: MIRTAZAPINE
     Indication: SLEEP DISORDER
     Dosage: 15 MILLIGRAM DAILY; 15 MG, DECLINING DOSE, TAPERED OFF (UNKNOWN, 1 IN 1 D)
     Route: 048
     Dates: start: 2013, end: 201805
  10. EUTHYROX [Concomitant]
     Active Substance: LEVOTHYROXINE SODIUM
     Indication: AUTOIMMUNE HYPOTHYROIDISM
     Dosage: 1 DOSAGE FORMS DAILY; ON 3 DAYS 100 ?G, ON 4 DAYS 112 ?G
     Route: 048

REACTIONS (9)
  - Breast enlargement [Not Recovered/Not Resolved]
  - Product use issue [Not Recovered/Not Resolved]
  - Performance status decreased [Not Recovered/Not Resolved]
  - Histamine intolerance [Not Recovered/Not Resolved]
  - Oestradiol increased [Recovering/Resolving]
  - Menorrhagia [Recovered/Resolved]
  - Fatigue [Recovered/Resolved]
  - Potentiating drug interaction [Recovered/Resolved]
  - Lichen sclerosus [Recovered/Resolved]

NARRATIVE: CASE EVENT DATE: 2015
